FAERS Safety Report 13039908 (Version 1)
Quarter: 2016Q4

REPORT INFORMATION
  Report Type: Spontaneous
  Country: US (occurrence: US)
  Receive Date: 20161219
  Receipt Date: 20161219
  Transmission Date: 20170207
  Serious: Yes (Other)
  Sender: FDA-Public Use
  Company Number: US-SA-2016SA229919

PATIENT

DRUGS (1)
  1. AMBIEN [Suspect]
     Active Substance: ZOLPIDEM TARTRATE
     Route: 065
     Dates: start: 201407, end: 201411

REACTIONS (6)
  - Anxiety [Unknown]
  - Road traffic accident [Unknown]
  - Pain [Unknown]
  - Coma [Unknown]
  - Somnambulism [Unknown]
  - Injury [Unknown]

NARRATIVE: CASE EVENT DATE: 20141106
